FAERS Safety Report 4354920-7 (Version None)
Quarter: 2004Q2

REPORT INFORMATION
  Report Type: 
  Country: None (occurrence: None)
  Receive Date: 20040510
  Receipt Date: 20040430
  Transmission Date: 20050107
  Serious: Yes (Death)
  Sender: FDA-Public Use
  Company Number: PHEH2004US04863

PATIENT

DRUGS (1)
  1. RITALIN [Suspect]

REACTIONS (1)
  - RENAL FAILURE [None]
